FAERS Safety Report 8425333-3 (Version None)
Quarter: 2012Q2

REPORT INFORMATION
  Report Type: 
  Country: None (occurrence: None)
  Receive Date: 20120605
  Receipt Date: 20120605
  Transmission Date: 20120825
  Serious: Yes (Other)
  Sender: FDA-Public Use
  Company Number: None

PATIENT
  Age: 71 Year
  Sex: Female
  Weight: 49.8957 kg

DRUGS (1)
  1. AZITHROMYCIN [Suspect]
     Indication: SINUSITIS
     Dosage: 250MG 2 TABS FIRST DAY, PO
     Route: 048
     Dates: start: 20120524, end: 20120527

REACTIONS (5)
  - INFLAMMATION [None]
  - ABNORMAL FAECES [None]
  - SYNCOPE [None]
  - BURSITIS [None]
  - DIARRHOEA [None]
